FAERS Safety Report 6373504-2 (Version None)
Quarter: 2009Q3

REPORT INFORMATION
  Report Type: 
  Country: None (occurrence: None)
  Receive Date: 20090924
  Receipt Date: 20090209
  Transmission Date: 20100115
  Serious: Yes (Other)
  Sender: FDA-Public Use
  Company Number: US-ASTRAZENECA-2009UW03778

PATIENT
  Age: 19342 Day
  Sex: Male

DRUGS (3)
  1. SEROQUEL [Suspect]
     Indication: AGITATION
     Route: 048
     Dates: start: 20090107
  2. VALIUM [Concomitant]
     Indication: CONVULSION
     Route: 048
  3. DILANTIN [Concomitant]
     Indication: AGITATION
     Route: 048

REACTIONS (3)
  - CONVULSION [None]
  - HYPOTENSION [None]
  - LIFE SUPPORT [None]
